FAERS Safety Report 6408331-0 (Version None)
Quarter: 2009Q4

REPORT INFORMATION
  Report Type: 
  Country: None (occurrence: None)
  Receive Date: 20091021
  Receipt Date: 20091010
  Transmission Date: 20100525
  Serious: Yes (Hospitalization, Other)
  Sender: FDA-Public Use
  Company Number: PHHY2009RS34661

PATIENT
  Age: 18 Year
  Sex: Male

DRUGS (6)
  1. CARBAMAZEPINE [Suspect]
     Indication: EPILEPSY
     Dosage: UNK
  2. VALPROIC ACID [Suspect]
     Indication: EPILEPSY
     Dosage: UNK
     Dates: start: 19990101
  3. VALPROIC ACID [Suspect]
     Dosage: 500 MG, BID
  4. PHENOBARBITAL [Suspect]
     Indication: EPILEPSY
  5. PARACETAMOL [Suspect]
  6. AMOXICILLIN [Concomitant]

REACTIONS (18)
  - ABDOMINAL PAIN [None]
  - CONVULSION [None]
  - DIARRHOEA [None]
  - DRUG RASH WITH EOSINOPHILIA AND SYSTEMIC SYMPTOMS [None]
  - EOSINOPHILIA [None]
  - FACE OEDEMA [None]
  - HEPATITIS [None]
  - HEPATOMEGALY [None]
  - LEUKOCYTOSIS [None]
  - LYMPHADENOPATHY [None]
  - LYMPHOCYTOSIS [None]
  - MENTAL STATUS CHANGES [None]
  - NAUSEA [None]
  - PROCALCITONIN INCREASED [None]
  - PYREXIA [None]
  - RASH MACULO-PAPULAR [None]
  - SEPSIS [None]
  - SPLENOMEGALY [None]
